FAERS Safety Report 6566790-7 (Version None)
Quarter: 2010Q1

REPORT INFORMATION
  Report Type: 
  Country: None (occurrence: None)
  Receive Date: 20100202
  Receipt Date: 20100121
  Transmission Date: 20100710
  Serious: Yes (Congenital Anomaly)
  Sender: FDA-Public Use
  Company Number: GB-WATSON-2010-00911

PATIENT

DRUGS (1)
  1. LAMOTRIGINE [Suspect]
     Indication: EPILEPSY

REACTIONS (13)
  - ANAL ATRESIA [None]
  - ANENCEPHALY [None]
  - CLEFT LIP [None]
  - CLEFT PALATE [None]
  - CONGENITAL CYSTIC KIDNEY DISEASE [None]
  - CONGENITAL DIAPHRAGMATIC HERNIA [None]
  - DYSPLASIA [None]
  - HYDRONEPHROSIS [None]
  - HYPOPLASTIC LEFT HEART SYNDROME [None]
  - HYPOSPADIAS [None]
  - JOINT DISLOCATION [None]
  - TALIPES [None]
  - VENTRICULAR SEPTAL DEFECT [None]
